FAERS Safety Report 10229001 (Version 1)
Quarter: 2014Q2

REPORT INFORMATION
  Report Type: Report from Study
  Country: CA (occurrence: CA)
  Receive Date: 20140610
  Receipt Date: 20140610
  Transmission Date: 20141212
  Serious: Yes (Hospitalization)
  Sender: FDA-Public Use
  Company Number: PHHO2014CA008108

PATIENT
  Age: 74 Year
  Sex: Female
  Weight: 74.3 kg

DRUGS (9)
  1. ACETYLSALICYLIC ACID [Suspect]
  2. LDE 225 [Suspect]
     Indication: MYELOFIBROSIS
     Dosage: 40 MG, QD
     Dates: start: 20130521, end: 20140529
  3. INC424 [Suspect]
     Indication: MYELOFIBROSIS
     Dosage: 10 MG, BID
     Dates: start: 20130521, end: 20140530
  4. ATIVAN [Concomitant]
     Indication: ANXIETY
     Dosage: 1 MG, QD
     Dates: start: 20130327
  5. ADALAT XL [Concomitant]
     Indication: HYPERTENSION
     Dosage: 60 MG, UNK
  6. SYNTHROID [Concomitant]
     Indication: HYPOTHYROIDISM
     Dosage: 0.088 G, UNK
  7. PREDNISONE [Concomitant]
     Indication: ARTHRITIS
     Dosage: 5 MG, UNK
     Dates: start: 20120409
  8. CIPRALEX                                /DEN/ [Concomitant]
     Indication: ANXIETY
     Dosage: 5 MG, UNK
     Dates: start: 20120408
  9. PRAVASTATIN [Concomitant]
     Indication: HYPERLIPIDAEMIA
     Dosage: 10 MG, UNK
     Dates: start: 20130516

REACTIONS (1)
  - Duodenal ulcer [Recovered/Resolved]
